FAERS Safety Report 25064589 (Version 2)
Quarter: 2025Q2

REPORT INFORMATION
  Report Type: Spontaneous
  Country: US (occurrence: US)
  Receive Date: 20250311
  Receipt Date: 20250409
  Transmission Date: 20250717
  Serious: No
  Sender: BRISTOL MYERS SQUIBB
  Company Number: US-BRISTOL-MYERS SQUIBB COMPANY-2025-036168

PATIENT
  Age: 72 Year
  Sex: Female
  Weight: 74.84 kg

DRUGS (2)
  1. REVLIMID [Suspect]
     Active Substance: LENALIDOMIDE
     Indication: Plasma cell myeloma
     Dosage: 1 CAPSULE DAILY ON DAYS 1-7 AND 15- 21, 7 DAYS ON, THEN 7 DAYS OFF, OF EVERY 28 DAY CYCLE
     Route: 048
     Dates: start: 202306
  2. REVLIMID [Suspect]
     Active Substance: LENALIDOMIDE
     Dosage: FREQUENCY: ONCE DAILY FOR 1 WEEK ON, 1 OFF
     Route: 048
     Dates: start: 202306

REACTIONS (5)
  - Diarrhoea [Recovering/Resolving]
  - Confusional state [Not Recovered/Not Resolved]
  - Off label use [Unknown]
  - Fatigue [Recovering/Resolving]
  - Brain fog [Recovering/Resolving]
